FAERS Safety Report 5823488-8 (Version None)
Quarter: 2008Q3

REPORT INFORMATION
  Report Type: 
  Country: None (occurrence: None)
  Receive Date: 20080725
  Receipt Date: 20080716
  Transmission Date: 20090109
  Serious: Yes (Death, Other)
  Sender: FDA-Public Use
  Company Number: JP-ELI_LILLY_AND_COMPANY-JP200805003448

PATIENT
  Sex: Male
  Weight: 50.8 kg

DRUGS (12)
  1. GEMZAR [Suspect]
     Indication: PANCREATIC CARCINOMA STAGE IV
     Dosage: 1600 MG, OTHER
     Route: 042
     Dates: start: 20060125, end: 20060526
  2. GEMZAR [Suspect]
     Dosage: 1200 MG, OTHER
     Route: 042
     Dates: start: 20060602, end: 20060609
  3. GEMZAR [Suspect]
     Dosage: 1000 MG, OTHER
     Route: 042
     Dates: start: 20060628, end: 20060707
  4. GEMZAR [Suspect]
     Dosage: 1200 MG, OTHER
     Route: 042
     Dates: start: 20060721
  5. GEMZAR [Suspect]
     Dosage: 1500 MG, OTHER
     Route: 042
     Dates: end: 20060929
  6. GEMZAR [Suspect]
     Dosage: 1600 MG, OTHER
     Route: 042
     Dates: start: 20061013, end: 20070718
  7. GEMZAR [Suspect]
     Dosage: 1600 MG, OTHER
     Route: 042
     Dates: start: 20080123, end: 20080129
  8. GEMZAR [Suspect]
     Dosage: 1400 MG, OTHER
     Route: 042
     Dates: start: 20080328, end: 20080516
  9. BASEN [Concomitant]
     Indication: DIABETES MELLITUS
     Dosage: 0.2 MG, 3/D
     Dates: start: 20030101
  10. NOVOLIN R [Concomitant]
     Indication: DIABETES MELLITUS
     Dosage: 16 U, EACH MORNING
     Route: 058
     Dates: start: 20030101
  11. NOVOLIN R [Concomitant]
     Dosage: 7 U, EACH EVENING
     Dates: start: 20030101
  12. MYSLEE [Concomitant]
     Indication: INSOMNIA
     Dosage: 10 MG, DAILY (1/D)
     Dates: start: 20030101

REACTIONS (5)
  - DISSEMINATED INTRAVASCULAR COAGULATION [None]
  - INTERSTITIAL LUNG DISEASE [None]
  - METASTASES TO LARGE INTESTINE [None]
  - METASTASES TO LUNG [None]
  - METASTASES TO PERITONEUM [None]
